FAERS Safety Report 8985932 (Version 1)
Quarter: 2012Q4

REPORT INFORMATION
  Report Type: 
  Country: US (occurrence: US)
  Receive Date: 20121226
  Receipt Date: 20121226
  Transmission Date: 20130627
  Serious: Yes (Other)
  Sender: FDA-Public Use
  Company Number: US-PFIZER INC-2012324603

PATIENT
  Age: 71 Year
  Sex: Female

DRUGS (3)
  1. VFEND [Suspect]
     Indication: ASPERGILLUS INFECTION NOS
     Dosage: 20 mg, 3x/day
     Dates: start: 20120410
  2. VFEND [Suspect]
     Indication: ASPERGILLUS INFECTION NOS
  3. VFEND [Suspect]
     Indication: LUNG INFECTION

REACTIONS (2)
  - Lung neoplasm malignant [Unknown]
  - Liver function test abnormal [Unknown]
